FAERS Safety Report 25551138 (Version 3)
Quarter: 2025Q3

REPORT INFORMATION
  Report Type: Report from Study
  Country: GB (occurrence: GB)
  Receive Date: 20250714
  Receipt Date: 20250904
  Transmission Date: 20251021
  Serious: Yes (Death, Life-Threatening, Hospitalization, Other)
  Sender: TAKEDA
  Company Number: GB-SHIRE-GB201609688AA

PATIENT
  Age: 76 Year
  Sex: Male
  Weight: 80.6 kg

DRUGS (3)
  1. VELAGLUCERASE ALFA [Suspect]
     Active Substance: VELAGLUCERASE ALFA
     Indication: Gaucher^s disease
     Dosage: 2400 INTERNATIONAL UNIT, Q2WEEKS
     Dates: start: 20091116, end: 20110110
  2. VELAGLUCERASE ALFA [Suspect]
     Active Substance: VELAGLUCERASE ALFA
     Dosage: 1600 INTERNATIONAL UNIT, Q2WEEKS
     Dates: start: 20110110, end: 20111127
  3. VELAGLUCERASE ALFA [Suspect]
     Active Substance: VELAGLUCERASE ALFA
     Dosage: 1600 INTERNATIONAL UNIT, Q2WEEKS
     Dates: start: 20111231

REACTIONS (3)
  - Hodgkin^s disease [Fatal]
  - Gastrointestinal adenocarcinoma [Fatal]
  - Signet-ring cell carcinoma [Fatal]

NARRATIVE: CASE EVENT DATE: 20160108
